FAERS Safety Report 6187551-7 (Version None)
Quarter: 2009Q2

REPORT INFORMATION
  Report Type: 
  Country: None (occurrence: None)
  Receive Date: 20090508
  Receipt Date: 20090429
  Transmission Date: 20091009
  Serious: Yes (Other)
  Sender: FDA-Public Use
  Company Number: GXKR2009GB05228

PATIENT
  Age: 63 Year
  Sex: Female

DRUGS (3)
  1. METRONIDAZOLE [Suspect]
     Indication: GINGIVAL INFECTION
     Dosage: 400 MG, TID, ORAL
     Route: 048
     Dates: start: 20090217, end: 20090222
  2. AMOXICILLIN [Concomitant]
  3. LAMOTRIGINE [Concomitant]

REACTIONS (3)
  - CONDITION AGGRAVATED [None]
  - CONVULSION [None]
  - EPILEPSY [None]
